FAERS Safety Report 6138519-8 (Version None)
Quarter: 2009Q1

REPORT INFORMATION
  Report Type: 
  Country: None (occurrence: None)
  Receive Date: 20090331
  Receipt Date: 20090323
  Transmission Date: 20090719
  Serious: Yes (Hospitalization, Other)
  Sender: FDA-Public Use
  Company Number: US-ELI_LILLY_AND_COMPANY-US200812002385

PATIENT
  Sex: Female
  Weight: 122.45 kg

DRUGS (22)
  1. BYETTA [Suspect]
     Dates: start: 20071201
  2. BYETTA [Suspect]
     Dosage: 5 UG, UNK
  3. BYETTA [Suspect]
     Dosage: 10 UG, 2/D
     Route: 065
     Dates: end: 20080722
  4. BYETTA [Suspect]
     Dosage: 10 UG, 2/D
     Route: 058
     Dates: start: 20080818, end: 20080820
  5. COREG [Concomitant]
     Dosage: UNK, DAILY (1/D)
     Route: 048
  6. COREG [Concomitant]
     Dosage: 6.25 MG, 2/D
  7. COREG [Concomitant]
     Dosage: 3.125 MG, 2/D
     Route: 048
  8. ACTOS [Concomitant]
     Dosage: 30 MG, EACH EVENING
     Route: 048
  9. GLUCOPHAGE [Concomitant]
     Dosage: 500 MG, DAILY (1/D)
     Route: 048
  10. GLUCOPHAGE [Concomitant]
     Dosage: 500 MG, DAILY (1/D)
  11. PROZAC [Concomitant]
     Dosage: 20 MG, DAILY (1/D)
     Route: 048
  12. ZETIA [Concomitant]
     Dosage: 20 MG, DAILY (1/D)
     Route: 048
  13. PRINIVIL [Concomitant]
     Dosage: 40 MG, UNK
  14. LYRICA [Concomitant]
     Dosage: 75 MG, 2/D
     Route: 048
  15. ASPIRIN                                 /SCH/ [Concomitant]
     Dosage: 81 MG, DAILY (1/D)
     Route: 048
  16. REGLAN [Concomitant]
     Dosage: 5 MG, EACH EVENING
     Route: 048
  17. CELEBREX [Concomitant]
     Dosage: 200 MG, EACH EVENING
     Route: 048
  18. TRICOR [Concomitant]
     Dosage: 145 MG, EACH EVENING
     Route: 048
  19. PRILOSEC [Concomitant]
     Dosage: 20 MG, EACH EVENING
     Route: 048
  20. LIPITOR [Concomitant]
     Dosage: 80 MG, EACH EVENING
     Route: 048
  21. BISOPROLOL FUMARATE [Concomitant]
  22. LISINOPRIL [Concomitant]
     Dosage: 40 MG, DAILY (1/D)
     Route: 048

REACTIONS (10)
  - ANAEMIA [None]
  - ASTHENIA [None]
  - BLOOD BILIRUBIN INCREASED [None]
  - DYSPNOEA [None]
  - LIVER FUNCTION TEST ABNORMAL [None]
  - PANCREATITIS [None]
  - PNEUMONIA [None]
  - UNRESPONSIVE TO STIMULI [None]
  - URINARY TRACT INFECTION [None]
  - WEIGHT DECREASED [None]
